FAERS Safety Report 18540830 (Version 2)
Quarter: 2020Q4

REPORT INFORMATION
  Report Type: Spontaneous
  Country: AR (occurrence: AR)
  Receive Date: 20201124
  Receipt Date: 20201201
  Transmission Date: 20210114
  Serious: Yes (Other)
  Sender: FDA-Public Use
  Company Number: NVSC2020AR308932

PATIENT
  Sex: Female

DRUGS (8)
  1. DIGOXIN. [Concomitant]
     Active Substance: DIGOXIN
     Indication: PRODUCT USED FOR UNKNOWN INDICATION
     Route: 065
  2. MEPREDNISONE [Concomitant]
     Active Substance: MEPREDNISONE
     Indication: PRODUCT USED FOR UNKNOWN INDICATION
     Route: 065
  3. SINTROM [Suspect]
     Active Substance: ACENOCOUMAROL
     Indication: ANTICOAGULANT THERAPY
     Route: 065
  4. ENTRESTO [Suspect]
     Active Substance: SACUBITRIL\VALSARTAN
     Indication: CARDIAC DISORDER
     Route: 065
  5. LOSARTAN. [Concomitant]
     Active Substance: LOSARTAN
     Indication: PRODUCT USED FOR UNKNOWN INDICATION
     Route: 065
  6. LEVOTHYROXINE. [Concomitant]
     Active Substance: LEVOTHYROXINE
     Indication: PRODUCT USED FOR UNKNOWN INDICATION
     Route: 065
  7. FLUTICASONE. [Concomitant]
     Active Substance: FLUTICASONE
     Indication: PRODUCT USED FOR UNKNOWN INDICATION
     Route: 065
  8. LANOXIN [Concomitant]
     Active Substance: DIGOXIN
     Indication: PRODUCT USED FOR UNKNOWN INDICATION
     Route: 065

REACTIONS (3)
  - Cardiac disorder [Unknown]
  - Lung disorder [Unknown]
  - Product use in unapproved indication [Unknown]
